FAERS Safety Report 11010591 (Version 2)
Quarter: 2015Q2

REPORT INFORMATION
  Report Type: Spontaneous
  Country: RU (occurrence: RU)
  Receive Date: 20150410
  Receipt Date: 20150415
  Transmission Date: 20150821
  Serious: Yes (Other)
  Sender: FDA-Public Use
  Company Number: RU-BIOMARINAP-RU-2015-106041

PATIENT
  Age: 13 Year
  Sex: Female

DRUGS (12)
  1. VIMIZIM [Suspect]
     Active Substance: ELOSULFASE ALFA
     Dosage: 62 MG, QW
     Route: 042
     Dates: start: 20150327, end: 20150327
  2. VIMIZIM [Suspect]
     Active Substance: ELOSULFASE ALFA
     Indication: MUCOPOLYSACCHARIDOSIS IV
     Dosage: 62 MG, QW
     Route: 042
     Dates: start: 20150408, end: 20150408
  3. PREDNISOLON                        /00016201/ [Concomitant]
     Active Substance: PREDNISOLONE
     Indication: PREMEDICATION
     Dosage: 50 MG, QW
     Dates: start: 20150408
  4. PREDNISOLON                        /00016201/ [Concomitant]
     Active Substance: PREDNISOLONE
     Dosage: 50 MG, QW
     Route: 030
     Dates: start: 20150318
  5. PREDNISOLON                        /00016201/ [Concomitant]
     Active Substance: PREDNISOLONE
     Dosage: 50 MG, QW
     Route: 042
     Dates: start: 20150327
  6. PREDNISOLON                        /00016201/ [Concomitant]
     Active Substance: PREDNISOLONE
     Dosage: 50 MG, QW
     Dates: start: 20150401
  7. VIMIZIM [Suspect]
     Active Substance: ELOSULFASE ALFA
     Dosage: 62 MG, QW
     Route: 042
     Dates: start: 20150318, end: 20150318
  8. VIMIZIM [Suspect]
     Active Substance: ELOSULFASE ALFA
     Dosage: 62 MG, QW
     Route: 042
     Dates: start: 20150401, end: 20150401
  9. TAVEGYL [Concomitant]
     Active Substance: CLEMASTINE FUMARATE
     Indication: PREMEDICATION
     Dosage: 1 MG, QW
     Route: 030
  10. PREDNISOLON                        /00016201/ [Concomitant]
     Active Substance: PREDNISOLONE
     Dosage: 50 MG, QW
     Route: 030
     Dates: start: 20150311
  11. RANITIDIN [Concomitant]
     Active Substance: RANITIDINE HYDROCHLORIDE
     Indication: PREMEDICATION
     Dosage: 150 MG, QW
     Route: 048
  12. VIMIZIM [Suspect]
     Active Substance: ELOSULFASE ALFA
     Dosage: 62 MG, QW
     Route: 042
     Dates: start: 20150311, end: 20150311

REACTIONS (4)
  - Oxygen saturation decreased [Recovered/Resolved]
  - Dyspnoea [Recovered/Resolved]
  - Abdominal pain [Recovered/Resolved]
  - Tachycardia [Recovered/Resolved]

NARRATIVE: CASE EVENT DATE: 20150408
